FAERS Safety Report 24081688 (Version 1)
Quarter: 2024Q3

REPORT INFORMATION
  Report Type: Spontaneous
  Country: JP (occurrence: JP)
  Receive Date: 20240712
  Receipt Date: 20240712
  Transmission Date: 20241017
  Serious: Yes (Hospitalization, Other)
  Sender: NOVO NORDISK
  Company Number: JP-NOVOPROD-1231438

PATIENT
  Age: 70 Year
  Sex: Male

DRUGS (1)
  1. NOVOSEVEN [Suspect]
     Active Substance: COAGULATION FACTOR VIIA RECOMBINANT HUMAN
     Indication: Acquired haemophilia
     Dosage: 5 MG (FOUR VIALS PER DAY)
     Route: 042
     Dates: start: 20240514, end: 202406

REACTIONS (2)
  - Intestinal obstruction [Recovering/Resolving]
  - Arterial haemorrhage [Unknown]

NARRATIVE: CASE EVENT DATE: 20240529
